FAERS Safety Report 4873357-5 (Version None)
Quarter: 2006Q1

REPORT INFORMATION
  Report Type: 
  Country: None (occurrence: None)
  Receive Date: 20060105
  Receipt Date: 20051226
  Transmission Date: 20060701
  Serious: Yes (Hospitalization)
  Sender: FDA-Public Use
  Company Number: US-ROCHE-429798

PATIENT
  Age: 43 Year
  Sex: Male
  Weight: 83 kg

DRUGS (5)
  1. PEG-INTERFERON ALFA 2A (RO 25-8310) [Suspect]
     Route: 058
     Dates: start: 20050406, end: 20051109
  2. PEG-INTERFERON ALFA 2A (RO 25-8310) [Suspect]
     Dosage: RESUMED.
     Route: 058
  3. RIBAVIRIN [Suspect]
     Route: 048
     Dates: start: 20050406, end: 20051118
  4. RIBAVIRIN [Suspect]
     Dosage: RESUMED.
     Route: 048
  5. LISINOPRIL [Concomitant]
     Indication: HYPERTENSION
     Dates: start: 20051028

REACTIONS (2)
  - CHOLECYSTITIS CHRONIC [None]
  - CHOLELITHIASIS [None]
